FAERS Safety Report 9132625 (Version 3)
Quarter: 2013Q2

REPORT INFORMATION
  Report Type: Report from Study
  Country: FR (occurrence: FR)
  Receive Date: 20130301
  Receipt Date: 20130402
  Transmission Date: 20140414
  Serious: Yes (Other)
  Sender: FDA-Public Use
  Company Number: FR-ROCHE-1196560

PATIENT
  Age: 57 Year
  Sex: Female
  Weight: 28.15 kg

DRUGS (5)
  1. TOCILIZUMAB [Suspect]
     Indication: RHEUMATOID ARTHRITIS
     Dosage: LAST DOSE PRIOR TO SAE: 30/AUG/2012
     Route: 041
     Dates: start: 20111208
  2. TOCILIZUMAB [Suspect]
     Route: 041
     Dates: start: 20120627
  3. TOCILIZUMAB [Suspect]
     Route: 041
     Dates: start: 20120726
  4. TOCILIZUMAB [Suspect]
     Route: 041
     Dates: start: 20120531
  5. POLARAMINE [Concomitant]
     Route: 042

REACTIONS (2)
  - Rash [Recovered/Resolved]
  - Bronchial disorder [Recovered/Resolved]
